FAERS Safety Report 6653681-6 (Version None)
Quarter: 2010Q1

REPORT INFORMATION
  Report Type: 
  Country: None (occurrence: None)
  Receive Date: 20100326
  Receipt Date: 20100312
  Transmission Date: 20100710
  Serious: Yes (Disabling)
  Sender: FDA-Public Use
  Company Number: CA-MERCK-1003USA02043

PATIENT
  Sex: Female
  Weight: 82 kg

DRUGS (4)
  1. PEPCID [Suspect]
     Route: 048
  2. PRILOSEC [Suspect]
     Route: 065
  3. PARIET [Suspect]
     Route: 065
  4. RANITIDINE [Suspect]
     Route: 048

REACTIONS (2)
  - GASTRITIS [None]
  - GASTROOESOPHAGEAL REFLUX DISEASE [None]
